FAERS Safety Report 4435888-1 (Version None)
Quarter: 2004Q3

REPORT INFORMATION
  Report Type: 
  Country: None (occurrence: None)
  Receive Date: 20040726
  Receipt Date: 20040303
  Transmission Date: 20050211
  Serious: No
  Sender: FDA-Public Use
  Company Number: USA031153033

PATIENT
  Age: 66 Year
  Sex: Female

DRUGS (7)
  1. FORTEO [Suspect]
     Dates: start: 20020101
  2. LEXAPRO [Concomitant]
  3. KLONOPIN [Concomitant]
  4. ZOCOR [Concomitant]
  5. MULTIVITAMIN [Concomitant]
  6. MINERALS NOS [Concomitant]
  7. CALCIUM [Concomitant]

REACTIONS (4)
  - BLOOD CALCIUM INCREASED [None]
  - BONE DISORDER [None]
  - DRUG INEFFECTIVE [None]
  - HYPERPARATHYROIDISM [None]
